FAERS Safety Report 4555353-0 (Version None)
Quarter: 2005Q1

REPORT INFORMATION
  Report Type: 
  Country: None (occurrence: None)
  Receive Date: 20050118
  Receipt Date: 20050118
  Transmission Date: 20050727
  Serious: No
  Sender: FDA-Public Use
  Company Number: None

PATIENT
  Age: 47 Year
  Sex: Female
  Weight: 69 kg

DRUGS (5)
  1. ATAZANAVIR 150 MG BMS [Suspect]
     Indication: HIV INFECTION
     Dates: start: 20040928, end: 20041203
  2. TENOFOVIR [Concomitant]
  3. ABACAVIR [Concomitant]
  4. RITONAVIR [Concomitant]
  5. OMEPRAZOLE [Concomitant]

REACTIONS (2)
  - HYPERBILIRUBINAEMIA [None]
  - JAUNDICE [None]
